FAERS Safety Report 6849391-2 (Version None)
Quarter: 2010Q3

REPORT INFORMATION
  Report Type: 
  Country: None (occurrence: None)
  Receive Date: 20100716
  Receipt Date: 20100706
  Transmission Date: 20110219
  Serious: Yes (Other)
  Sender: FDA-Public Use
  Company Number: CA-ELI_LILLY_AND_COMPANY-CA201005007945

PATIENT
  Sex: Male

DRUGS (5)
  1. CYMBALTA [Suspect]
     Dosage: 60 MG, UNK
     Dates: start: 20100407, end: 20100413
  2. CYMBALTA [Suspect]
     Dosage: 60 MG, UNK
     Dates: start: 20100414, end: 20100519
  3. AVAPRO [Concomitant]
     Indication: HYPERTENSION
     Dosage: 50 MG, DAILY (1/D)
  4. PANTOLOC                           /01263202/ [Concomitant]
     Indication: GASTROOESOPHAGEAL REFLUX DISEASE
     Dosage: 40 MG, DAILY (1/D)
  5. ALCOHOL [Concomitant]

REACTIONS (1)
  - HEPATITIS [None]
